FAERS Safety Report 5630400-3 (Version None)
Quarter: 2008Q1

REPORT INFORMATION
  Report Type: 
  Country: None (occurrence: None)
  Receive Date: 20080219
  Receipt Date: 20080214
  Transmission Date: 20080703
  Serious: Yes (Death)
  Sender: FDA-Public Use
  Company Number: US-BRISTOL-MYERS SQUIBB COMPANY-14077655

PATIENT
  Age: 2 Day
  Sex: Female

DRUGS (1)
  1. ABILIFY [Suspect]
     Route: 064
     Dates: start: 20070423

REACTIONS (2)
  - CEREBRAL HAEMORRHAGE [None]
  - PREGNANCY [None]
